FAERS Safety Report 15986784 (Version 1)
Quarter: 2019Q1

REPORT INFORMATION
  Report Type: Spontaneous
  Country: CN (occurrence: CN)
  Receive Date: 20190220
  Receipt Date: 20190220
  Transmission Date: 20190418
  Serious: Yes (Other)
  Sender: FDA-Public Use
  Company Number: CN-JNJFOC-20190219787

PATIENT
  Age: 50 Year
  Sex: Female
  Weight: 44 kg

DRUGS (1)
  1. DUROGESIC D-TRANS [Suspect]
     Active Substance: FENTANYL
     Indication: HEPATIC CANCER
     Route: 062
     Dates: start: 20181114, end: 20181126

REACTIONS (3)
  - Somnolence [Recovering/Resolving]
  - Cold sweat [Recovering/Resolving]
  - Respiratory depression [Recovering/Resolving]

NARRATIVE: CASE EVENT DATE: 20181126
